FAERS Safety Report 7581131-4 (Version None)
Quarter: 2011Q2

REPORT INFORMATION
  Report Type: 
  Country: None (occurrence: None)
  Receive Date: 20110629
  Receipt Date: 20110620
  Transmission Date: 20111010
  Serious: Yes (Other)
  Sender: FDA-Public Use
  Company Number: US-JNJFOC-20110612078

PATIENT
  Age: 34 Month
  Sex: Female

DRUGS (2)
  1. CHILDREN'S TYLENOL SUSPENSION [Suspect]
     Indication: PYREXIA
     Route: 048
     Dates: start: 20110616, end: 20110619
  2. CHILDREN'S TYLENOL SUSPENSION [Suspect]
     Indication: PAIN
     Route: 048
     Dates: start: 20110616, end: 20110619

REACTIONS (3)
  - GINGIVAL BLEEDING [None]
  - GINGIVAL DISCOLOURATION [None]
  - GINGIVAL BLISTER [None]
